FAERS Safety Report 16742802 (Version 4)
Quarter: 2020Q2

REPORT INFORMATION
  Report Type: Report from Study
  Country: None (occurrence: CA)
  Receive Date: 20190826
  Receipt Date: 20200628
  Transmission Date: 20200713
  Serious: Yes (Hospitalization)
  Sender: FDA-Public Use
  Company Number: CA-ABBVIE-19K-028-2893055-00

PATIENT
  Age: 54 Year
  Sex: Male

DRUGS (2)
  1. HUMIRA [Suspect]
     Active Substance: ADALIMUMAB
     Route: 058
     Dates: start: 20191201
  2. HUMIRA [Suspect]
     Active Substance: ADALIMUMAB
     Indication: CROHN^S DISEASE
     Route: 058
     Dates: start: 20160624, end: 2019

REACTIONS (3)
  - Malaise [Recovered/Resolved]
  - Coma [Recovered/Resolved]
  - Pneumonia viral [Recovered/Resolved]

NARRATIVE: CASE EVENT DATE: 201908
